FAERS Safety Report 7859253-X (Version None)
Quarter: 2011Q4

REPORT INFORMATION
  Report Type: 
  Country: None (occurrence: None)
  Receive Date: 20111027
  Receipt Date: 20111027
  Transmission Date: 20120403
  Serious: Yes (Other)
  Sender: FDA-Public Use
  Company Number: None

PATIENT
  Sex: Female
  Weight: 93.893 kg

DRUGS (9)
  1. SEROQUEL [Concomitant]
     Route: 048
  2. LAMICTAL [Concomitant]
     Route: 048
  3. PAXIL [Concomitant]
     Route: 048
  4. SEROQUEL [Concomitant]
     Route: 048
  5. NEXIUM [Concomitant]
     Route: 048
  6. LISINOPRIL [Concomitant]
     Route: 048
  7. SODIUM FERRIC GLUCONATE COMPLEX IN SUCROSE [Suspect]
     Indication: IRON DEFICIENCY ANAEMIA
     Dosage: 375 MG
     Route: 042
     Dates: start: 20111013, end: 20111014
  8. VALIUM [Concomitant]
     Route: 048
  9. VICODIN [Concomitant]
     Route: 048

REACTIONS (13)
  - PALPITATIONS [None]
  - PARAESTHESIA [None]
  - NAUSEA [None]
  - OEDEMA PERIPHERAL [None]
  - MALAISE [None]
  - TACHYCARDIA [None]
  - DYSPNOEA [None]
  - MUSCLE SPASMS [None]
  - DIZZINESS [None]
  - HYPOAESTHESIA [None]
  - RESTLESSNESS [None]
  - TREMOR [None]
  - BACK PAIN [None]
